FAERS Safety Report 8183389-X (Version None)
Quarter: 2012Q1

REPORT INFORMATION
  Report Type: 
  Country: None (occurrence: None)
  Receive Date: 20120305
  Receipt Date: 20120224
  Transmission Date: 20120608
  Serious: Yes (Hospitalization, Other)
  Sender: FDA-Public Use
  Company Number: CA-PFIZER INC-2012052176

PATIENT
  Age: 34 Year
  Sex: Female

DRUGS (5)
  1. IRON [Concomitant]
  2. PREDNISONE [Concomitant]
     Indication: IMMUNOSUPPRESSANT DRUG THERAPY
     Dosage: 5 MG, DAILY
     Dates: start: 20070101
  3. ERYTHROPOIETIN [Concomitant]
  4. SIROLIMUS [Suspect]
     Indication: IMMUNOSUPPRESSANT DRUG THERAPY
     Dosage: 5 MG, DAILY
  5. ENALAPRIL [Concomitant]

REACTIONS (1)
  - SCLEROSING ENCAPSULATING PERITONITIS [None]
